FAERS Safety Report 18070596 (Version 1)
Quarter: 2020Q3

REPORT INFORMATION
  Report Type: Spontaneous
  Country: US (occurrence: US)
  Receive Date: 20200727
  Receipt Date: 20200727
  Transmission Date: 20201103
  Serious: No
  Sender: FDA-Public Use
  Company Number: US-AUROBINDO-AUR-APL-2019-062533

PATIENT
  Age: 76 Year
  Sex: Female

DRUGS (4)
  1. AMIODARONE HYDROCHLORIDE 200MG [Suspect]
     Active Substance: AMIODARONE HYDROCHLORIDE
     Dosage: 200 MILLIGRAM, TWO TIMES A DAY
     Route: 065
  2. AMIODARONE HYDROCHLORIDE 200MG [Suspect]
     Active Substance: AMIODARONE HYDROCHLORIDE
     Dosage: 400 MILLIGRAM, TWO TIMES A DAY
     Route: 065
  3. AMIODARONE HYDROCHLORIDE 200MG [Suspect]
     Active Substance: AMIODARONE HYDROCHLORIDE
     Indication: ARRHYTHMIA
     Dosage: 800 MILLIGRAM, TWO TIMES A DAY
     Route: 065
     Dates: start: 20190614
  4. AMIODARONE HYDROCHLORIDE 200MG [Suspect]
     Active Substance: AMIODARONE HYDROCHLORIDE
     Dosage: 100 MILLIGRAM, TWO TIMES A DAY
     Route: 065
     Dates: end: 20190916

REACTIONS (8)
  - Dizziness [Unknown]
  - Feeling abnormal [Unknown]
  - Product substitution issue [Unknown]
  - Asthenia [Unknown]
  - Illness [Unknown]
  - Wrong technique in product usage process [Unknown]
  - Insomnia [Unknown]
  - Product label issue [Unknown]

NARRATIVE: CASE EVENT DATE: 20190614
